FAERS Safety Report 24384682 (Version 3)
Quarter: 2024Q4

REPORT INFORMATION
  Report Type: Report from Study
  Country: US (occurrence: US)
  Receive Date: 20241001
  Receipt Date: 20241025
  Transmission Date: 20250114
  Serious: Yes (Hospitalization)
  Sender: Pyros Pharmaceuticals
  Company Number: US-PYROS PHARMACEUTICALS, INC-2024-PYROS-US000059

PATIENT
  Age: 0 Year
  Sex: Male
  Weight: 12.25 kg

DRUGS (7)
  1. VIGPODER [Suspect]
     Active Substance: VIGABATRIN
     Indication: Infantile spasms
     Dosage: 250 MG (5 ML), BID
     Route: 048
     Dates: start: 20240831
  2. VIGPODER [Suspect]
     Active Substance: VIGABATRIN
     Indication: Epilepsy
     Dosage: 500 MG (10 ML), BID
     Route: 048
     Dates: start: 20240913, end: 20240923
  3. VIGPODER [Suspect]
     Active Substance: VIGABATRIN
     Dosage: 750 MG (15 ML), BID
     Route: 048
     Dates: start: 20240924, end: 20240928
  4. VIGPODER [Suspect]
     Active Substance: VIGABATRIN
     Dosage: 1000 MG (20 ML), BID
     Route: 048
     Dates: start: 20240928
  5. CLOBAZAM [Concomitant]
     Active Substance: CLOBAZAM
     Indication: Infantile spasms
     Dosage: 1 ML, BID
     Route: 048
     Dates: start: 20240924, end: 20241001
  6. CLOBAZAM [Concomitant]
     Active Substance: CLOBAZAM
     Dosage: 2 ML, BID
     Route: 048
     Dates: start: 20241002, end: 20241010
  7. CLOBAZAM [Concomitant]
     Active Substance: CLOBAZAM
     Dosage: 3 ML, BID
     Route: 048
     Dates: start: 20241011

REACTIONS (5)
  - Seizure [Not Recovered/Not Resolved]
  - Therapeutic product effect incomplete [Not Recovered/Not Resolved]
  - Somnolence [Recovered/Resolved]
  - Constipation [Recovered/Resolved]
  - Prescribed overdose [Unknown]

NARRATIVE: CASE EVENT DATE: 20240831
